APPROVED DRUG PRODUCT: PROCAINAMIDE HYDROCHLORIDE
Active Ingredient: PROCAINAMIDE HYDROCHLORIDE
Strength: 500MG
Dosage Form/Route: CAPSULE;ORAL
Application: A088990 | Product #001
Applicant: ROXANE LABORATORIES INC
Approved: Apr 26, 1985 | RLD: No | RS: No | Type: DISCN